FAERS Safety Report 23918513 (Version 3)
Quarter: 2025Q3

REPORT INFORMATION
  Report Type: Report from Study
  Country: CA (occurrence: CA)
  Receive Date: 20240530
  Receipt Date: 20250819
  Transmission Date: 20251020
  Serious: Yes (Other)
  Sender: JOHNSON AND JOHNSON
  Company Number: CA-JNJFOC-20240486679

PATIENT
  Age: 82 Year
  Sex: Male

DRUGS (1)
  1. SIMPONI [Suspect]
     Active Substance: GOLIMUMAB
     Indication: Rheumatoid arthritis
     Dosage: LAST DOSE WAS ON 12-APR-2024.?STRENGTH: 50MG/0.5 ML, FREQUENCY : EVERY 30 DAYS
     Route: 058

REACTIONS (3)
  - Orchitis [Not Recovered/Not Resolved]
  - Cardiac operation [Unknown]
  - Rheumatoid arthritis [Unknown]
